FAERS Safety Report 19887273 (Version 1)
Quarter: 2021Q3

REPORT INFORMATION
  Report Type: Spontaneous
  Country: DE (occurrence: DE)
  Receive Date: 20210928
  Receipt Date: 20210928
  Transmission Date: 20211014
  Serious: Yes (Hospitalization)
  Sender: FDA-Public Use
  Company Number: DE-TEVA-2021-DE-1957438

PATIENT
  Age: 82 Year
  Sex: Female

DRUGS (13)
  1. ECOTHIOPATE IODID [Concomitant]
     Dosage: 1529 MCG, SCHEME
  2. FOLSAEURE [Concomitant]
     Active Substance: FOLIC ACID
     Dosage: .4 MILLIGRAM DAILY; 0?1?0?0
  3. COLECALCIFEROL [Concomitant]
     Active Substance: CHOLECALCIFEROL
     Dosage: 1000 IU (INTERNATIONAL UNIT) DAILY; 1?0?0?0
  4. ROTIGOTIN [Concomitant]
     Active Substance: ROTIGOTINE
     Dosage: 2 MILLIGRAM DAILY; 1?0?0?0
  5. RAMIPRIL. [Concomitant]
     Active Substance: RAMIPRIL
     Dosage: 2.5 MILLIGRAM DAILY; 1?0?0?0
  6. ACETYLSALICYLSAEURE [Concomitant]
     Active Substance: ASPIRIN
     Dosage: 100 MILLIGRAM DAILY; 1?0?0?0
  7. LEVODOPA?CARBIDOPA [Suspect]
     Active Substance: CARBIDOPA\LEVODOPA
     Dosage: 100/25 MG, SCHEME, 1 DF
     Route: 065
  8. SAFINAMID [Concomitant]
     Dosage: 100 MILLIGRAM DAILY; 1?0?0?0
  9. BENSERAZIDE/LEVODOPA [Suspect]
     Active Substance: BENSERAZIDE\LEVODOPA
     Dosage: 25|100 MG, SCHEME, 1 DF
     Route: 065
  10. LEVODOPA?CARBIDOPA [Suspect]
     Active Substance: CARBIDOPA\LEVODOPA
     Dosage: 200/50 MG, SCHEME, 1 DF
     Route: 065
  11. PROTHIPENDYL [Concomitant]
     Active Substance: PROTHIPENDYL
     Dosage: 384 MILLIGRAM DAILY; 48 MG, 0?0?0?8
  12. ATORVASTATIN [Concomitant]
     Active Substance: ATORVASTATIN
     Dosage: 10 MILLIGRAM DAILY; 20 MG, 0?0?0?0.5
  13. PANTOPRAZOL [Concomitant]
     Active Substance: PANTOPRAZOLE SODIUM
     Dosage: 40 MILLIGRAM DAILY; 0?1?0?0

REACTIONS (5)
  - Condition aggravated [Unknown]
  - Parkinsonism [Unknown]
  - General physical health deterioration [Unknown]
  - Disorientation [Unknown]
  - Confusional state [Unknown]
